FAERS Safety Report 20339879 (Version 1)
Quarter: 2022Q1

REPORT INFORMATION
  Report Type: Spontaneous
  Country: CH (occurrence: CH)
  Receive Date: 20220117
  Receipt Date: 20220117
  Transmission Date: 20220423
  Serious: Yes (Other)
  Sender: FDA-Public Use
  Company Number: CH-AMGEN-CHESP2022006855

PATIENT
  Age: 68 Year
  Sex: Female

DRUGS (5)
  1. BEVACIZUMAB [Suspect]
     Active Substance: BEVACIZUMAB
     Indication: Cervix carcinoma
     Dosage: 15 MILLIGRAM/KILOGRAM
     Route: 065
  2. CARBOPLATIN [Concomitant]
     Active Substance: CARBOPLATIN
  3. GEMCITABINE [Concomitant]
     Active Substance: GEMCITABINE
  4. DOXORUBICIN [Concomitant]
     Active Substance: DOXORUBICIN
  5. OLAPARIB [Concomitant]
     Active Substance: OLAPARIB
     Dosage: 300 MILLIGRAM, BID

REACTIONS (2)
  - Cervix cancer metastatic [Recovered/Resolved]
  - Thrombocytopenia [Unknown]
